FAERS Safety Report 6185716-1 (Version None)
Quarter: 2009Q2

REPORT INFORMATION
  Report Type: 
  Country: None (occurrence: None)
  Receive Date: 20090507
  Receipt Date: 20090428
  Transmission Date: 20091009
  Serious: Yes (Death)
  Sender: FDA-Public Use
  Company Number: 09-ADE-SU-0013-ACT

PATIENT
  Age: 4 Month
  Sex: Male

DRUGS (3)
  1. ACTH [Suspect]
     Indication: INFANTILE SPASMS
     Dosage: ACTH 20-40 U IM QD
     Route: 030
  2. PHENOBARBITAL [Concomitant]
  3. CEFACLOR [Concomitant]

REACTIONS (11)
  - ACUTE RESPIRATORY DISTRESS SYNDROME [None]
  - BRONCHIOLITIS [None]
  - DIARRHOEA [None]
  - INFANTILE SPASMS [None]
  - IRRITABILITY [None]
  - ORAL CANDIDIASIS [None]
  - PNEUMONIA [None]
  - PULMONARY OEDEMA [None]
  - RESPIRATORY FAILURE [None]
  - RESPIRATORY SYNCYTIAL VIRUS TEST POSITIVE [None]
  - TONIC CONVULSION [None]
